FAERS Safety Report 4835854-8 (Version None)
Quarter: 2005Q4

REPORT INFORMATION
  Report Type: 
  Country: None (occurrence: None)
  Receive Date: 20051123
  Receipt Date: 20051121
  Transmission Date: 20060501
  Serious: Yes (Other)
  Sender: FDA-Public Use
  Company Number: US-GLAXOSMITHKLINE-A0583038A

PATIENT
  Age: 6 Year
  Sex: Female

DRUGS (2)
  1. DEBROX DROPS [Suspect]
     Indication: CERUMEN REMOVAL
     Route: 001
     Dates: start: 20051101
  2. NO CONCURRENT MEDICATION [Concomitant]
     Route: 001

REACTIONS (2)
  - DRUG INEFFECTIVE [None]
  - PSYCHIATRIC SYMPTOM [None]
